FAERS Safety Report 17281644 (Version 1)
Quarter: 2020Q1

REPORT INFORMATION
  Report Type: Report from Study
  Country: US (occurrence: US)
  Receive Date: 20200117
  Receipt Date: 20200117
  Transmission Date: 20200409
  Serious: Yes (Death)
  Sender: FDA-Public Use
  Company Number: US-ROCHE-2525250

PATIENT
  Age: 65 Year
  Sex: Male

DRUGS (3)
  1. ETOPOSIDE. [Concomitant]
     Active Substance: ETOPOSIDE
  2. TECENTRIQ [Suspect]
     Active Substance: ATEZOLIZUMAB
     Indication: LUNG NEOPLASM MALIGNANT
     Route: 042
     Dates: start: 20190923
  3. CARBOPLATIN. [Concomitant]
     Active Substance: CARBOPLATIN

REACTIONS (1)
  - Death [Fatal]

NARRATIVE: CASE EVENT DATE: 20191106
